FAERS Safety Report 12172891 (Version 1)
Quarter: 2016Q1

REPORT INFORMATION
  Report Type: Spontaneous
  Country: JP (occurrence: JP)
  Receive Date: 20160311
  Receipt Date: 20160311
  Transmission Date: 20160526
  Serious: Yes (Other)
  Sender: FDA-Public Use
  Company Number: PHHY2016JP030400

PATIENT
  Age: 79 Year
  Sex: Male

DRUGS (1)
  1. PREDNISOLONE. [Suspect]
     Active Substance: PREDNISOLONE
     Indication: NEURITIS
     Dosage: 40 MG, QD
     Route: 065

REACTIONS (3)
  - Drug ineffective [Unknown]
  - Aneurysm [Recovered/Resolved]
  - Tuberculosis [Unknown]
